FAERS Safety Report 5577255-3 (Version None)
Quarter: 2007Q4

REPORT INFORMATION
  Report Type: 
  Country: None (occurrence: None)
  Receive Date: 20071228
  Receipt Date: 20071221
  Transmission Date: 20080405
  Serious: Yes (Hospitalization)
  Sender: FDA-Public Use
  Company Number: JP-MERCK-0712USA02234

PATIENT
  Age: 77 Year
  Sex: Male

DRUGS (5)
  1. FOSAMAX [Suspect]
     Route: 048
     Dates: end: 20070101
  2. GASTER [Concomitant]
     Route: 048
  3. GANATON [Concomitant]
     Route: 048
  4. CARBOCYSTEINE [Concomitant]
     Route: 048
  5. CALFINA [Concomitant]
     Route: 048

REACTIONS (2)
  - JAW CYST [None]
  - OSTEOMYELITIS [None]
